FAERS Safety Report 10099568 (Version 1)
Quarter: 2014Q2

REPORT INFORMATION
  Report Type: Report from Study
  Country: US (occurrence: US)
  Receive Date: 20140423
  Receipt Date: 20140423
  Transmission Date: 20141212
  Serious: Yes (Other)
  Sender: FDA-Public Use
  Company Number: US-UCBSA-118980

PATIENT
  Age: 41 Year
  Sex: Male
  Weight: 125 kg

DRUGS (10)
  1. CIMZIA [Suspect]
     Indication: CROHN^S DISEASE
     Route: 058
     Dates: start: 20110421
  2. LONOX [Concomitant]
     Indication: DIARRHOEA
     Dosage: 1-2 TABLETS ONCE DAILY WHEN NEEDED
     Route: 048
     Dates: start: 2011
  3. LOPERAMIDE [Concomitant]
     Indication: CROHN^S DISEASE
  4. NEXIUM [Concomitant]
     Indication: GASTROOESOPHAGEAL REFLUX DISEASE
     Route: 048
  5. ZOFRAN [Concomitant]
     Indication: NAUSEA
     Route: 048
  6. IBUPROFEN [Concomitant]
     Indication: CROHN^S DISEASE
  7. ALIGN [Concomitant]
     Indication: GASTROINTESTINAL INFECTION
     Route: 048
     Dates: start: 2012
  8. LEVEMIR [Concomitant]
     Indication: TYPE 2 DIABETES MELLITUS
     Dosage: 10UNITS
     Route: 058
     Dates: start: 201105
  9. MIRALAX [Concomitant]
     Indication: CONSTIPATION
     Dosage: CAPFUL WHEN NEEDED
     Route: 048
  10. CANASA SUPPOSITORIES [Concomitant]
     Indication: CROHN^S DISEASE
     Dates: start: 2013, end: 2013

REACTIONS (1)
  - Perirectal abscess [Recovered/Resolved]
